FAERS Safety Report 6621305-X (Version None)
Quarter: 2010Q1

REPORT INFORMATION
  Report Type: 
  Country: None (occurrence: None)
  Receive Date: 20100309
  Receipt Date: 20100201
  Transmission Date: 20100710
  Serious: No
  Sender: FDA-Public Use
  Company Number: US-BIOGENIDEC-2010BI003815

PATIENT
  Age: 52 Year
  Sex: Female

DRUGS (2)
  1. AVONEX [Suspect]
     Indication: MULTIPLE SCLEROSIS
     Route: 030
     Dates: start: 19961106, end: 20050801
  2. AVONEX [Suspect]
     Route: 030
     Dates: start: 20050801, end: 20100107

REACTIONS (3)
  - DIARRHOEA [None]
  - INFLUENZA [None]
  - VOMITING [None]
